FAERS Safety Report 23314921 (Version 2)
Quarter: 2023Q4

REPORT INFORMATION
  Report Type: Report from Study
  Country: CH (occurrence: CH)
  Receive Date: 20231219
  Receipt Date: 20231222
  Transmission Date: 20240110
  Serious: Yes (Hospitalization)
  Sender: FDA-Public Use
  Company Number: None

PATIENT
  Age: 56 Year
  Sex: Female

DRUGS (14)
  1. EUTHYROX [Suspect]
     Active Substance: LEVOTHYROXINE SODIUM
     Indication: Suicidal ideation
  2. LITHIUM SULFATE [Suspect]
     Active Substance: LITHIUM SULFATE
     Indication: Suicidal ideation
  3. REMERON [Suspect]
     Active Substance: MIRTAZAPINE
     Indication: Suicidal ideation
  4. LAMOTRIGINE [Suspect]
     Active Substance: LAMOTRIGINE
     Indication: Suicidal ideation
  5. LYRICA [Suspect]
     Active Substance: PREGABALIN
     Indication: Suicidal ideation
  6. PAROXETINE HYDROCHLORIDE [Suspect]
     Active Substance: PAROXETINE HYDROCHLORIDE\PAROXETINE HYDROCHLORIDE ANHYDROUS
     Indication: Suicidal ideation
  7. FLUOXETINE HYDROCHLORIDE [Suspect]
     Active Substance: FLUOXETINE HYDROCHLORIDE
     Indication: Suicidal ideation
  8. ROSUVASTATIN CALCIUM [Suspect]
     Active Substance: ROSUVASTATIN CALCIUM
     Indication: Suicidal ideation
  9. XANAX [Suspect]
     Active Substance: ALPRAZOLAM
     Indication: Suicidal ideation
  10. PRAMIPEXOLE [Suspect]
     Active Substance: PRAMIPEXOLE
     Indication: Suicidal ideation
  11. CALCIUM\CHOLECALCIFEROL [Concomitant]
     Active Substance: CALCIUM\CHOLECALCIFEROL
     Indication: Product used for unknown indication
     Dosage: 500 MG / 800 U
  12. PANTOPRAZOLE SODIUM [Concomitant]
     Active Substance: PANTOPRAZOLE SODIUM
     Indication: Product used for unknown indication
  13. MAGNESIUM DIASPORAL [MAGNESIUM CITRATE] [Concomitant]
     Indication: Product used for unknown indication
     Dosage: AS NECESSARY
  14. ALUCOL [ALUMINIUM HYDROXIDE;MAGNESIUM HYDROXIDE] [Concomitant]
     Indication: Product used for unknown indication
     Dosage: AS NECESSARY

REACTIONS (6)
  - Toxicity to various agents [Recovering/Resolving]
  - Bradypnoea [Recovering/Resolving]
  - Serotonin syndrome [Unknown]
  - Hallucination [Unknown]
  - Aspiration [Unknown]
  - Muscle spasms [Recovering/Resolving]
